FAERS Safety Report 13184302 (Version 6)
Quarter: 2017Q3

REPORT INFORMATION
  Report Type: Report from Study
  Country: GB (occurrence: GB)
  Receive Date: 20170203
  Receipt Date: 20170724
  Transmission Date: 20171127
  Serious: Yes (Hospitalization)
  Sender: FDA-Public Use
  Company Number: GB-ROCHE-1888006

PATIENT
  Age: 61 Year
  Sex: Female
  Weight: 83 kg

DRUGS (18)
  1. BUTRANS [Concomitant]
     Active Substance: BUPRENORPHINE
     Indication: ARTHRALGIA
     Route: 048
     Dates: start: 20170101
  2. FRAGMIN [Concomitant]
     Active Substance: DALTEPARIN SODIUM
     Indication: THROMBOSIS PROPHYLAXIS
     Route: 048
  3. FLUCONAZOLE. [Concomitant]
     Active Substance: FLUCONAZOLE
     Indication: PROPHYLAXIS
     Route: 048
     Dates: start: 20170128, end: 20170203
  4. CALCICHEW [Concomitant]
     Active Substance: CALCIUM CARBONATE
     Indication: HYPOCALCAEMIA
     Route: 048
     Dates: start: 20170128, end: 20170201
  5. PIZOTIFEN [Concomitant]
     Active Substance: PIZOTYLINE
     Route: 048
     Dates: start: 2009
  6. TEICOPLANIN [Concomitant]
     Active Substance: TEICOPLANIN
     Indication: PROPHYLAXIS
     Route: 042
     Dates: start: 20170128, end: 20170129
  7. SYNACTHEN (UNK INGREDIENTS) [Concomitant]
     Route: 042
     Dates: start: 20170131, end: 20170131
  8. COBIMETINIB. [Suspect]
     Active Substance: COBIMETINIB
     Indication: COLORECTAL ADENOCARCINOMA
     Dosage: THE DATE OF THE MOST RECENT DOSE OF COBIMETINIB 60 MG PRIOR TO SAE ONSET WAS TAKEN ON 22/JAN/2017
     Route: 048
     Dates: start: 20170109
  9. CHLORPHENAMINE [Concomitant]
     Active Substance: CHLORPHENIRAMINE MALEATE
     Indication: RASH
     Route: 048
     Dates: start: 20170119
  10. AUGMENTIN [Concomitant]
     Active Substance: AMOXICILLIN\CLAVULANATE POTASSIUM
     Indication: PROPHYLAXIS
     Route: 042
     Dates: start: 20170127, end: 20170127
  11. NYSTATIN. [Concomitant]
     Active Substance: NYSTATIN
     Indication: ORAL CANDIDIASIS
     Route: 061
     Dates: start: 20170127, end: 20170221
  12. SYNACTHEN (UNK INGREDIENTS) [Concomitant]
     Route: 042
     Dates: start: 20170202, end: 20170203
  13. BETAMETHASONE. [Concomitant]
     Active Substance: BETAMETHASONE
     Indication: RASH
     Route: 061
     Dates: start: 20170119
  14. TAZOCIN [Concomitant]
     Active Substance: PIPERACILLIN SODIUM\TAZOBACTAM SODIUM
     Indication: PROPHYLAXIS
     Route: 042
     Dates: start: 20170127, end: 20170203
  15. SENNA [Concomitant]
     Active Substance: SENNA LEAF\SENNOSIDES\SENNOSIDES A AND B
     Indication: PROPHYLAXIS
     Route: 048
     Dates: start: 20170129, end: 20170204
  16. ATEZOLIZUMAB. [Suspect]
     Active Substance: ATEZOLIZUMAB
     Indication: COLORECTAL ADENOCARCINOMA
     Dosage: THE DATE OF THE MOST RECENT DOSE OF ATEZOLIZUMAB 840 MG PRIOR TO SAE ONSET WAS TAKEN ON 09/JAN/2017
     Route: 042
     Dates: start: 20170109
  17. TEICOPLANIN [Concomitant]
     Active Substance: TEICOPLANIN
     Route: 042
     Dates: start: 20170201, end: 20170203
  18. SANDO K [Concomitant]
     Indication: HYPOKALAEMIA
     Route: 048
     Dates: start: 20170129, end: 20170131

REACTIONS (2)
  - Mucosal inflammation [Recovered/Resolved]
  - Nausea [Recovered/Resolved]

NARRATIVE: CASE EVENT DATE: 20170121
